FAERS Safety Report 7379767-9 (Version None)
Quarter: 2011Q1

REPORT INFORMATION
  Report Type: 
  Country: None (occurrence: None)
  Receive Date: 20110329
  Receipt Date: 20110321
  Transmission Date: 20110831
  Serious: Yes (Congenital Anomaly)
  Sender: FDA-Public Use
  Company Number: FR-ASTELLAS-2011EU001532

PATIENT
  Sex: Female
  Weight: 1.845 kg

DRUGS (3)
  1. PROGRAF [Suspect]
     Indication: DRUG EXPOSURE DURING PREGNANCY
     Dosage: 3 MG, TOTAL DOSE
     Route: 064
     Dates: start: 20100620, end: 20110212
  2. CORTANCYL [Suspect]
     Indication: DRUG EXPOSURE DURING PREGNANCY
     Dosage: 15 MG, TOTAL DOSE
     Route: 064
     Dates: start: 20100620, end: 20110212
  3. IMUREL [Suspect]
     Indication: DRUG EXPOSURE DURING PREGNANCY
     Dosage: 50 MG, TOTAL DOSE
     Route: 064
     Dates: start: 20100620, end: 20110212

REACTIONS (6)
  - MICROTIA [None]
  - CONGENITAL AURAL FISTULA [None]
  - FISTULA [None]
  - RENAL HYPOPLASIA [None]
  - FOETAL GROWTH RESTRICTION [None]
  - HAIR GROWTH ABNORMAL [None]
